FAERS Safety Report 13509873 (Version 1)
Quarter: 2017Q2

REPORT INFORMATION
  Report Type: Spontaneous
  Country: US (occurrence: US)
  Receive Date: 20170503
  Receipt Date: 20170503
  Transmission Date: 20170830
  Serious: No
  Sender: FDA-Public Use
  Company Number: US-SA-2017SA048937

PATIENT
  Age: 66 Year
  Sex: Male

DRUGS (3)
  1. PRALUENT [Suspect]
     Active Substance: ALIROCUMAB
     Indication: BLOOD CHOLESTEROL INCREASED
     Route: 065
     Dates: start: 201612
  2. ALIROCUMAB PREFILLED PEN [Concomitant]
     Active Substance: ALIROCUMAB
     Indication: BLOOD CHOLESTEROL INCREASED
     Dates: start: 201612
  3. ZETIA [Concomitant]
     Active Substance: EZETIMIBE

REACTIONS (4)
  - Increased upper airway secretion [Recovering/Resolving]
  - Arthralgia [Recovering/Resolving]
  - Influenza like illness [Recovering/Resolving]
  - Cough [Recovering/Resolving]
